FAERS Safety Report 15168891 (Version 1)
Quarter: 2018Q3

REPORT INFORMATION
  Report Type: Spontaneous
  Country: FR (occurrence: FR)
  Receive Date: 20180720
  Receipt Date: 20180720
  Transmission Date: 20181010
  Serious: Yes (Other)
  Sender: FDA-Public Use
  Company Number: FR-CONCORDIA PHARMACEUTICALS INC.-GSH201807-002539

PATIENT
  Age: 63 Year
  Sex: Male

DRUGS (3)
  1. ALFUZOSIN EXTENDED?RELEASE TABLET 10 MG [Suspect]
     Active Substance: ALFUZOSIN
     Indication: PROSTATE CANCER
     Route: 048
     Dates: start: 20180611, end: 20180611
  2. NEO?MERCAZOLE [Concomitant]
     Active Substance: CARBIMAZOLE
  3. NEBIVOLOL. [Concomitant]
     Active Substance: NEBIVOLOL

REACTIONS (1)
  - Nasal congestion [Recovered/Resolved]

NARRATIVE: CASE EVENT DATE: 20180611
